FAERS Safety Report 10635738 (Version 3)
Quarter: 2015Q2

REPORT INFORMATION
  Report Type: Report from Study
  Country: US (occurrence: US)
  Receive Date: 20141205
  Receipt Date: 20150528
  Transmission Date: 20150821
  Serious: Yes (Other)
  Sender: FDA-Public Use
  Company Number: US-ABBVIE-14P-163-1315542-00

PATIENT
  Age: 25 Year
  Sex: Female

DRUGS (4)
  1. LUPRON DEPOT [Suspect]
     Active Substance: LEUPROLIDE ACETATE
     Indication: ENDOMETRIOSIS
     Route: 058
     Dates: start: 2005
  2. DEPO-PROVERA [Suspect]
     Active Substance: MEDROXYPROGESTERONE ACETATE
     Indication: ENDOMETRIOSIS
     Route: 065
     Dates: start: 2005, end: 2010
  3. LUVOX [Concomitant]
     Active Substance: FLUVOXAMINE MALEATE
     Indication: OBSESSIVE-COMPULSIVE DISORDER
     Dosage: 50 MG IN AM AND 100 MG IN PM
  4. LUVOX [Concomitant]
     Active Substance: FLUVOXAMINE MALEATE
     Indication: DEPRESSION

REACTIONS (13)
  - Abortion spontaneous [Unknown]
  - Infertility [Not Recovered/Not Resolved]
  - Osteopenia [Unknown]
  - Lipoma [Unknown]
  - Wrist surgery [Unknown]
  - Knee operation [Unknown]
  - Night sweats [Recovered/Resolved]
  - Endometriosis [Unknown]
  - Arthralgia [Unknown]
  - Fatigue [Recovered/Resolved]
  - Vitamin D deficiency [Unknown]
  - Knee operation [Unknown]
  - Menorrhagia [Unknown]

NARRATIVE: CASE EVENT DATE: 2005
